FAERS Safety Report 16149352 (Version 2)
Quarter: 2019Q2

REPORT INFORMATION
  Report Type: Spontaneous
  Country: CN (occurrence: CN)
  Receive Date: 20190402
  Receipt Date: 20190410
  Transmission Date: 20190711
  Serious: Yes (Other)
  Sender: FDA-Public Use
  Company Number: CN-009507513-1903CHN012193

PATIENT
  Age: 37 Year
  Sex: Male

DRUGS (2)
  1. ZADAXIN [Concomitant]
     Active Substance: THYMALFASIN
     Indication: IMMUNE ENHANCEMENT THERAPY
     Dosage: UNK
  2. KEYTRUDA [Suspect]
     Active Substance: PEMBROLIZUMAB
     Indication: COLON CANCER
     Dosage: 100 MILLIGRAM, IV GTT
     Route: 041
     Dates: start: 20170808

REACTIONS (2)
  - Immune thrombocytopenic purpura [Unknown]
  - Product use in unapproved indication [Unknown]

NARRATIVE: CASE EVENT DATE: 201708
